FAERS Safety Report 18897133 (Version 1)
Quarter: 2021Q1

REPORT INFORMATION
  Report Type: Spontaneous
  Country: US (occurrence: US)
  Receive Date: 20210212
  Receipt Date: 20210212
  Transmission Date: 20210420
  Serious: Yes (Hospitalization)
  Sender: FDA-Public Use
  Company Number: None

PATIENT
  Age: 44 Year
  Sex: Female
  Weight: 132.3 kg

DRUGS (6)
  1. BAMLANIVIMAB FOR EUA [Suspect]
     Active Substance: BAMLANIVIMAB
     Indication: COVID-19
     Route: 042
     Dates: start: 20210114, end: 20210114
  2. BECLOMETHASONE [Concomitant]
     Active Substance: BECLOMETHASONE
  3. ALBUTEROL. [Concomitant]
     Active Substance: ALBUTEROL
  4. BENZONATATE. [Concomitant]
     Active Substance: BENZONATATE
  5. ONDANSETRON [Concomitant]
     Active Substance: ONDANSETRON
  6. GUAIFENESIN. [Concomitant]
     Active Substance: GUAIFENESIN

REACTIONS (7)
  - Retching [None]
  - Diarrhoea [None]
  - Nausea [None]
  - Thrombocytopenia [None]
  - Chest pain [None]
  - Cough [None]
  - COVID-19 pneumonia [None]

NARRATIVE: CASE EVENT DATE: 20210115
